FAERS Safety Report 8348704-2 (Version None)
Quarter: 2012Q2

REPORT INFORMATION
  Report Type: 
  Country: None (occurrence: None)
  Receive Date: 20120508
  Receipt Date: 20120427
  Transmission Date: 20120825
  Serious: Yes (Other)
  Sender: FDA-Public Use
  Company Number: 2012P1012700

PATIENT
  Age: 70 Year
  Sex: Female
  Weight: 65.7716 kg

DRUGS (11)
  1. PLAVIX [Concomitant]
  2. NEXIUM [Concomitant]
  3. HYDRODIURIL [Concomitant]
  4. ASPIRIN [Concomitant]
  5. ACETAMINOPHEN [Concomitant]
  6. PROVENTIL AERO INHALER [Concomitant]
  7. ALBENZA [Suspect]
     Indication: INFECTION PARASITIC
     Dosage: 400 MG;X1;
     Dates: start: 20120403, end: 20120403
  8. ALBENZA [Suspect]
     Indication: NEMATODIASIS
     Dosage: 400 MG;X1;
     Dates: start: 20120403, end: 20120403
  9. FLOVENT HFA [Concomitant]
  10. LIPITOR [Concomitant]
  11. MICRO-K [Concomitant]

REACTIONS (15)
  - ASTHENIA [None]
  - DYSKINESIA [None]
  - HEADACHE [None]
  - SINUS POLYP [None]
  - DIPLOPIA [None]
  - LOSS OF CONSCIOUSNESS [None]
  - APHASIA [None]
  - FATIGUE [None]
  - CYST [None]
  - NAUSEA [None]
  - DIZZINESS [None]
  - SUPRAVENTRICULAR TACHYCARDIA [None]
  - PRESYNCOPE [None]
  - HYPERTENSION [None]
  - SYNCOPE [None]
